FAERS Safety Report 14274573 (Version 1)
Quarter: 2017Q4

REPORT INFORMATION
  Report Type: Report from Study
  Country: IN (occurrence: IN)
  Receive Date: 20171211
  Receipt Date: 20171211
  Transmission Date: 20180321
  Serious: Yes (Other)
  Sender: FDA-Public Use
  Company Number: IN-ROCHE-2036318

PATIENT

DRUGS (5)
  1. HEPARIN [Concomitant]
     Active Substance: HEPARIN SODIUM
     Dosage: FOR INITIAL 48 H
     Route: 042
  2. ACENOCOUMAROL [Concomitant]
     Active Substance: ACENOCOUMAROL
     Route: 065
  3. ASPIRIN. [Concomitant]
     Active Substance: ASPIRIN
     Route: 065
  4. TENECTEPLASE [Suspect]
     Active Substance: TENECTEPLASE
     Indication: CARDIAC VALVE REPLACEMENT COMPLICATION
     Dosage: 0.5 MG/KG AS INTRAVENOUS INFUSION OVER 24 H, AND THROMBOLYSIS WAS REPEATED 2 TIMES (48 H)
     Route: 042
  5. HEPARIN [Concomitant]
     Active Substance: HEPARIN SODIUM
     Route: 042

REACTIONS (1)
  - Peripheral ischaemia [Unknown]
